FAERS Safety Report 6993705-X (Version None)
Quarter: 2010Q3

REPORT INFORMATION
  Report Type: 
  Country: None (occurrence: None)
  Receive Date: 20100917
  Receipt Date: 20090727
  Transmission Date: 20110219
  Serious: Yes (Other)
  Sender: FDA-Public Use
  Company Number: US-ASTRAZENECA-2009SE06245

PATIENT
  Age: 55 Year
  Sex: Male

DRUGS (2)
  1. SEROQUEL [Suspect]
     Dosage: REGIMEN FOR APPROXIMATELY 6 YEARS
     Route: 048
  2. PAXIL [Concomitant]

REACTIONS (1)
  - DIABETES MELLITUS [None]
